FAERS Safety Report 6877222-3 (Version None)
Quarter: 2010Q3

REPORT INFORMATION
  Report Type: 
  Country: None (occurrence: None)
  Receive Date: 20100727
  Receipt Date: 20100606
  Transmission Date: 20110219
  Serious: No
  Sender: FDA-Public Use
  Company Number: US-ABBOTT-08P-163-0450372-00

PATIENT
  Sex: Female
  Weight: 90.8 kg

DRUGS (5)
  1. SYNTHROID [Suspect]
     Indication: HYPOTHYROIDISM
     Dates: start: 20080101
  2. LEVOTHYROXINE [Suspect]
     Indication: PRODUCT USED FOR UNKNOWN INDICATION
  3. BENADRYL [Concomitant]
     Indication: PRODUCT USED FOR UNKNOWN INDICATION
  4. ASTEPRO [Concomitant]
     Indication: HYPERSENSITIVITY
     Dosage: PRN
  5. STOOL SOFTENER [Concomitant]
     Indication: PRODUCT USED FOR UNKNOWN INDICATION
     Dosage: PRN

REACTIONS (11)
  - ARTHRALGIA [None]
  - BRAIN OEDEMA [None]
  - BURNING SENSATION [None]
  - CHEST DISCOMFORT [None]
  - ERYTHEMA [None]
  - FAECAL INCONTINENCE [None]
  - GENERALISED OEDEMA [None]
  - PARAESTHESIA [None]
  - PRURITUS [None]
  - URINARY INCONTINENCE [None]
  - VIITH NERVE PARALYSIS [None]
